FAERS Safety Report 23713522 (Version 6)
Quarter: 2024Q2

REPORT INFORMATION
  Report Type: Spontaneous
  Country: US (occurrence: US)
  Receive Date: 20240405
  Receipt Date: 20240614
  Transmission Date: 20240716
  Serious: No
  Sender: FDA-Public Use
  Company Number: US-BRISTOL-MYERS SQUIBB COMPANY-2024-053856

PATIENT
  Age: 73 Year
  Sex: Male
  Weight: 64.86 kg

DRUGS (1)
  1. POMALYST [Suspect]
     Active Substance: POMALIDOMIDE
     Indication: Plasma cell myeloma
     Route: 048

REACTIONS (9)
  - Dizziness [Recovering/Resolving]
  - Chest pain [Recovered/Resolved]
  - Painful respiration [Recovered/Resolved]
  - Dyspepsia [Unknown]
  - Neutrophil count abnormal [Unknown]
  - Product dose omission issue [Recovering/Resolving]
  - Fatigue [Recovering/Resolving]
  - Insomnia [Recovering/Resolving]
  - Neutrophil count decreased [Recovering/Resolving]

NARRATIVE: CASE EVENT DATE: 20240507
